FAERS Safety Report 4275201-6 (Version None)
Quarter: 2004Q1

REPORT INFORMATION
  Report Type: 
  Country: None (occurrence: None)
  Receive Date: 20040116
  Receipt Date: 20040105
  Transmission Date: 20041129
  Serious: Yes (Other)
  Sender: FDA-Public Use
  Company Number: T03-USA-02578-01

PATIENT
  Age: 65 Year
  Sex: Male
  Weight: 101 kg

DRUGS (8)
  1. MEMANTINE HCL [Suspect]
     Indication: DIABETIC NEUROPATHY
     Dosage: 5 MG BID PO
     Route: 048
     Dates: start: 20020204, end: 20020211
  2. MEMANTINE HCL [Suspect]
     Indication: DIABETIC NEUROPATHY
     Dosage: 10 MG BID PO
     Route: 048
     Dates: start: 20020211, end: 20020219
  3. GLYBURIDE [Concomitant]
  4. METFORMIN HCL [Concomitant]
  5. DOXAZOSIN MESYLATE [Concomitant]
  6. COZAAR [Concomitant]
  7. PRAVASTATIN [Concomitant]
  8. CLARITIN [Concomitant]

REACTIONS (5)
  - ATRIOVENTRICULAR BLOCK FIRST DEGREE [None]
  - BRADYCARDIA [None]
  - BUNDLE BRANCH BLOCK LEFT [None]
  - DIZZINESS [None]
  - OFF LABEL USE [None]
